FAERS Safety Report 9875476 (Version 1)
Quarter: 2014Q1

REPORT INFORMATION
  Report Type: Other
  Country: US (occurrence: US)
  Receive Date: 20140206
  Receipt Date: 20140206
  Transmission Date: 20141002
  Serious: No
  Sender: FDA-Public Use
  Company Number: US-ACORDA-ACO_37957_2013

PATIENT
  Sex: Female
  Weight: 102.4 kg

DRUGS (6)
  1. AMPYRA [Suspect]
     Indication: GAIT DISTURBANCE
     Dosage: 10 MG, Q 12 HRS
     Route: 048
     Dates: start: 20130615, end: 201307
  2. AMPYRA [Suspect]
     Indication: BALANCE DISORDER
     Dosage: 10 MG, Q 12 HRS
     Route: 048
     Dates: start: 20130812
  3. VITAMIN B2 [Suspect]
     Indication: FATIGUE
     Dosage: 400 MG, QD
     Route: 048
     Dates: start: 2012, end: 201308
  4. COPAXONE [Concomitant]
     Indication: PRODUCT USED FOR UNKNOWN INDICATION
     Dosage: UNK
  5. CELLCEPT [Concomitant]
     Indication: PRODUCT USED FOR UNKNOWN INDICATION
     Dosage: 500 MG, UNK
  6. CYMBALTA [Concomitant]
     Indication: PAIN
     Dosage: 30 MG, UNK

REACTIONS (5)
  - Arthritis [Recovering/Resolving]
  - Yellow skin [Not Recovered/Not Resolved]
  - Muscle spasms [Recovering/Resolving]
  - Muscular weakness [Recovering/Resolving]
  - Mobility decreased [Recovering/Resolving]
